FAERS Safety Report 17967363 (Version 1)
Quarter: 2020Q3

REPORT INFORMATION
  Report Type: Spontaneous
  Country: US (occurrence: US)
  Receive Date: 20200701
  Receipt Date: 20200701
  Transmission Date: 20201103
  Serious: Yes (Other)
  Sender: FDA-Public Use
  Company Number: US-TEVA-2020-US-1794322

PATIENT
  Age: 66 Year
  Sex: Female

DRUGS (21)
  1. DIAZEPAM. [Concomitant]
     Active Substance: DIAZEPAM
     Dosage: VERTIGO PRN
     Dates: start: 20171018
  2. CALCIUM [Concomitant]
     Active Substance: CALCIUM
     Dates: start: 20171018
  3. TRANSDERM?SC DIS [Concomitant]
     Dosage: VERTIGO PRN
     Route: 058
     Dates: start: 20171018
  4. MONTELUKAST [Concomitant]
     Active Substance: MONTELUKAST SODIUM
     Dates: start: 20171018
  5. HCTZ [Concomitant]
     Active Substance: HYDROCHLOROTHIAZIDE
     Dates: start: 20200413
  6. POTASSIUM CHLORIDE. [Concomitant]
     Active Substance: POTASSIUM CHLORIDE
     Dosage: K?DUR 20MEQ
     Dates: start: 20171018
  7. FLUOXETINE [Concomitant]
     Active Substance: FLUOXETINE HYDROCHLORIDE
     Dosage: 20 OR 30 DAILY
     Dates: start: 20171018
  8. AMBIEN [Concomitant]
     Active Substance: ZOLPIDEM TARTRATE
     Dosage: JET LAG PRN
     Dates: start: 20171018
  9. SIMVASTATIN. [Concomitant]
     Active Substance: SIMVASTATIN
     Dates: start: 20171018
  10. LATISSE [Concomitant]
     Active Substance: BIMATOPROST
     Dosage: SOL
     Dates: start: 20171018
  11. COPAXONE [Suspect]
     Active Substance: GLATIRAMER ACETATE
     Indication: MULTIPLE SCLEROSIS
     Route: 058
     Dates: start: 20110201
  12. MECLIZINE [Concomitant]
     Active Substance: MECLIZINE HYDROCHLORIDE
     Dosage: VERTIGO PRN
     Dates: start: 20171018
  13. HYDROCHLOROTHIAZID [Concomitant]
     Active Substance: HYDROCHLOROTHIAZIDE
     Dates: start: 20171018
  14. ESTRADIOL. [Concomitant]
     Active Substance: ESTRADIOL
     Dates: start: 20171018
  15. ZOFRAN [Concomitant]
     Active Substance: ONDANSETRON HYDROCHLORIDE
     Dates: start: 20171018
  16. ACYCLOVIR. [Concomitant]
     Active Substance: ACYCLOVIR
     Dosage: COLD SORES PRN
     Dates: start: 20171018
  17. NIFEDIPINE. [Concomitant]
     Active Substance: NIFEDIPINE
     Dates: start: 20171018
  18. MULTIVITAMIN [Concomitant]
     Active Substance: VITAMINS
     Dosage: DAILY
  19. CETIRIZINE [Concomitant]
     Active Substance: CETIRIZINE HYDROCHLORIDE
     Dates: start: 20171018
  20. TRETINOIN. [Concomitant]
     Active Substance: TRETINOIN
     Dates: start: 20171018
  21. VITAMIN D [Concomitant]
     Active Substance: VITAMIN D NOS
     Dates: start: 20171018

REACTIONS (1)
  - Multiple sclerosis relapse [Recovering/Resolving]

NARRATIVE: CASE EVENT DATE: 20200611
